FAERS Safety Report 6326748-X (Version None)
Quarter: 2009Q3

REPORT INFORMATION
  Report Type: 
  Country: None (occurrence: None)
  Receive Date: 20090825
  Receipt Date: 20090819
  Transmission Date: 20100115
  Serious: Yes (Other)
  Sender: FDA-Public Use
  Company Number: PHHY2009GB30803

PATIENT
  Age: 44 Year
  Sex: Male
  Weight: 62 kg

DRUGS (5)
  1. TEGRETOL [Suspect]
     Dosage: 600 MG, QD
     Route: 048
  2. TEGRETOL [Interacting]
     Dosage: 1000MG QD
     Route: 048
     Dates: start: 19940101
  3. LOPERAMIDE [Interacting]
     Dosage: 2MG, PRN
  4. KEPPRA [Interacting]
     Dosage: 625 MG, QD
     Route: 048
  5. ZONEGRAN [Interacting]
     Indication: EPILEPSY
     Dosage: 25 MG, QD
     Route: 048
     Dates: start: 20090514, end: 20090614

REACTIONS (5)
  - ANXIETY [None]
  - DIARRHOEA [None]
  - DRUG INTERACTION [None]
  - GRAND MAL CONVULSION [None]
  - PARAESTHESIA [None]
